FAERS Safety Report 4508993-9 (Version None)
Quarter: 2004Q4

REPORT INFORMATION
  Report Type: 
  Country: None (occurrence: None)
  Receive Date: 20041122
  Receipt Date: 20041122
  Transmission Date: 20050328
  Serious: Yes (Hospitalization)
  Sender: FDA-Public Use
  Company Number: None

PATIENT
  Age: 84 Year
  Sex: Female

DRUGS (7)
  1. BENAZEPRIL HCL [Suspect]
     Indication: CARDIAC FAILURE
     Dosage: 5 MG DAILY ORAL
     Route: 048
  2. BENAZEPRIL HCL [Suspect]
     Indication: HYPERTENSION
     Dosage: 5 MG DAILY ORAL
     Route: 048
  3. NORVASC [Concomitant]
  4. TENORMIN [Concomitant]
  5. LIPITOR [Concomitant]
  6. FUROSEMIDE -LASIC [Concomitant]
  7. POTASSIUM CHLORIDE [Concomitant]

REACTIONS (2)
  - SWELLING FACE [None]
  - SWOLLEN TONGUE [None]
